FAERS Safety Report 18066871 (Version 3)
Quarter: 2020Q4

REPORT INFORMATION
  Report Type: Spontaneous
  Country: GB (occurrence: GB)
  Receive Date: 20200724
  Receipt Date: 20201208
  Transmission Date: 20210113
  Serious: No
  Sender: FDA-Public Use
  Company Number: NVSC2020GB199342

PATIENT
  Age: 77 Year
  Sex: Female

DRUGS (3)
  1. BENEPALI [Suspect]
     Active Substance: ETANERCEPT
     Indication: RHEUMATOID ARTHRITIS
     Dosage: 50 MG, QW
     Route: 058
     Dates: start: 20191007
  2. COCODAMOL [Suspect]
     Active Substance: ACETAMINOPHEN\CODEINE PHOSPHATE
     Indication: PAIN
     Dosage: UNK
     Route: 065
  3. MORPHINE [Suspect]
     Active Substance: MORPHINE
     Indication: PAIN
     Dosage: UNK
     Route: 065

REACTIONS (12)
  - Fatigue [Unknown]
  - Impaired quality of life [Unknown]
  - Gait disturbance [Unknown]
  - Arthralgia [Unknown]
  - Mass [Unknown]
  - Asthenia [Unknown]
  - Pain [Unknown]
  - Rash macular [Unknown]
  - Abdominal discomfort [Unknown]
  - Pain in extremity [Unknown]
  - Procedural pain [Unknown]
  - Balance disorder [Unknown]
